FAERS Safety Report 25948865 (Version 1)
Quarter: 2025Q4

REPORT INFORMATION
  Report Type: Spontaneous
  Country: US (occurrence: US)
  Receive Date: 20251022
  Receipt Date: 20251022
  Transmission Date: 20260117
  Serious: Yes (Death, Hospitalization, Other)
  Sender: AMGEN
  Company Number: US-AMGEN-USASP2025206088

PATIENT

DRUGS (3)
  1. DARBEPOETIN ALFA [Suspect]
     Active Substance: DARBEPOETIN ALFA
     Indication: Anaemia
     Dosage: 0.45 MICROGRAM/KILOGRAM, QWK
     Route: 058
  2. DARBEPOETIN ALFA [Suspect]
     Active Substance: DARBEPOETIN ALFA
     Dosage: 160 MILLIGRAM (40 MCG PER DOSE X 4 TOTAL DOSES)
     Route: 058
  3. FERROUS SULFATE [Concomitant]
     Active Substance: FERROUS SULFATE
     Indication: Anaemia
     Dosage: 325 MILLIGRAM, BID
     Route: 048

REACTIONS (27)
  - Death [Fatal]
  - Cardiac failure [Unknown]
  - Hypomagnesaemia [Recovered/Resolved]
  - Hypokalaemia [Unknown]
  - Accelerated hypertension [Unknown]
  - Cardiac failure chronic [Unknown]
  - Gastrointestinal haemorrhage [Unknown]
  - Social problem [Unknown]
  - Gastric polyps [Unknown]
  - Empyema [Unknown]
  - Respiratory failure [Unknown]
  - Cholecystitis acute [Unknown]
  - Systemic inflammatory response syndrome [Unknown]
  - Deep vein thrombosis [Unknown]
  - Fall [Unknown]
  - Rash [Unknown]
  - Dizziness [Unknown]
  - Hypertension [Unknown]
  - Gastroenteritis [Unknown]
  - Meniscus injury [Unknown]
  - Peripheral ischaemia [Unknown]
  - Cardiovascular disorder [Unknown]
  - Urinary tract infection [Unknown]
  - Arthralgia [Unknown]
  - Albuminuria [Unknown]
  - Blood pressure diastolic increased [Unknown]
  - Hypoglycaemia [Unknown]
